FAERS Safety Report 23449352 (Version 1)
Quarter: 2024Q1

REPORT INFORMATION
  Report Type: Spontaneous
  Country: None (occurrence: CN)
  Receive Date: 20240129
  Receipt Date: 20240129
  Transmission Date: 20240410
  Serious: Yes (Hospitalization, Disabling, Other)
  Sender: FDA-Public Use
  Company Number: CN-Jiangsu Hansoh Pharmaceutical Co., Ltd-2152210

PATIENT
  Age: 35 Year
  Sex: Male
  Weight: 58 kg

DRUGS (2)
  1. AZACITIDINE [Suspect]
     Active Substance: AZACITIDINE
     Indication: Chronic myeloid leukaemia
     Route: 058
     Dates: start: 20231024, end: 20231027
  2. DASATINIB [Concomitant]
     Active Substance: DASATINIB
     Route: 048
     Dates: start: 20231024, end: 20231027

REACTIONS (2)
  - Organising pneumonia [Not Recovered/Not Resolved]
  - Immune-mediated lung disease [Not Recovered/Not Resolved]

NARRATIVE: CASE EVENT DATE: 20231027
